FAERS Safety Report 18309465 (Version 1)
Quarter: 2020Q3

REPORT INFORMATION
  Report Type: Spontaneous
  Country: JP (occurrence: FR)
  Receive Date: 20200924
  Receipt Date: 20200924
  Transmission Date: 20201103
  Serious: Yes (Life-Threatening, Hospitalization, Other)
  Sender: FDA-Public Use
  Company Number: FR-ELI_LILLY_AND_COMPANY-FR202009010283

PATIENT
  Age: 63 Year
  Sex: Male

DRUGS (4)
  1. LERCAPRESS [ENALAPRIL MALEATE;LERCANIDIPINE HYDROCHLORIDE] [Suspect]
     Active Substance: ENALAPRIL MALEATE\LERCANIDIPINE HYDROCHLORIDE
     Indication: TOXICITY TO VARIOUS AGENTS
     Dosage: 90 DOSAGE FORM, UNKNOWN
     Route: 048
     Dates: start: 20200821, end: 20200821
  2. PRASUGREL HYDROCHLORIDE [Suspect]
     Active Substance: PRASUGREL HYDROCHLORIDE
     Indication: TOXICITY TO VARIOUS AGENTS
     Dosage: 30 DOSAGE FORM, UNKNOWN
     Route: 048
     Dates: start: 20200821, end: 20200821
  3. ASPIRINE [Suspect]
     Active Substance: ASPIRIN
     Indication: TOXICITY TO VARIOUS AGENTS
     Dosage: 3000 MG, UNKNOWN
     Route: 048
     Dates: start: 20200821, end: 20200821
  4. SELOKEN [METOPROLOL TARTRATE] [Suspect]
     Active Substance: METOPROLOL TARTRATE
     Indication: TOXICITY TO VARIOUS AGENTS
     Dosage: 30 DOSAGE FORM, UNKNOWN
     Route: 048
     Dates: start: 20200821, end: 20200821

REACTIONS (6)
  - Coma [Recovered/Resolved]
  - Hepatocellular injury [Recovered/Resolved]
  - Hypotension [Recovered/Resolved]
  - Bradycardia [Recovered/Resolved]
  - Acute kidney injury [Recovered/Resolved]
  - Respiratory disorder [Recovered/Resolved]

NARRATIVE: CASE EVENT DATE: 20200821
